FAERS Safety Report 22002707 (Version 1)
Quarter: 2023Q1

REPORT INFORMATION
  Report Type: Other
  Country: GB (occurrence: None)
  Receive Date: 20230217
  Receipt Date: 20230217
  Transmission Date: 20230417
  Serious: Yes (Other)
  Sender: FDA-Public Use
  Company Number: GB-ROCHE-3279824

PATIENT
  Sex: Female

DRUGS (1)
  1. TOCILIZUMAB [Suspect]
     Active Substance: TOCILIZUMAB
     Indication: Rheumatoid arthritis
     Route: 058
     Dates: start: 202209

REACTIONS (5)
  - Hepatitis [Unknown]
  - Renal pain [Recovered/Resolved]
  - Discomfort [Unknown]
  - Inflammation [Unknown]
  - Hot flush [Unknown]
